FAERS Safety Report 18996133 (Version 1)
Quarter: 2021Q1

REPORT INFORMATION
  Report Type: Spontaneous
  Country: DE (occurrence: DE)
  Receive Date: 20210311
  Receipt Date: 20210311
  Transmission Date: 20210420
  Serious: No
  Sender: FDA-Public Use
  Company Number: DE-LUPIN PHARMACEUTICALS INC.-2021-02921

PATIENT

DRUGS (1)
  1. OXYCAN UNO 40 MG RETARDTABLETTEN [Suspect]
     Active Substance: OXYCODONE
     Indication: PRODUCT USED FOR UNKNOWN INDICATION
     Dosage: 40 MILLIGRAM
     Route: 065

REACTIONS (3)
  - No adverse event [Unknown]
  - Circumstance or information capable of leading to medication error [Unknown]
  - Product prescribing error [Unknown]
